FAERS Safety Report 21169850 (Version 3)
Quarter: 2023Q1

REPORT INFORMATION
  Report Type: Report from Study
  Country: DE (occurrence: DE)
  Receive Date: 20220804
  Receipt Date: 20230112
  Transmission Date: 20230417
  Serious: Yes (Hospitalization, Other)
  Sender: FDA-Public Use
  Company Number: DE-TAKEDA-2022TUS051910

PATIENT
  Sex: Male

DRUGS (15)
  1. TEDUGLUTIDE [Suspect]
     Active Substance: TEDUGLUTIDE
     Indication: Short-bowel syndrome
     Dosage: 4 MILLIGRAM, QD
     Route: 042
     Dates: start: 20150719, end: 20200909
  2. TEDUGLUTIDE [Suspect]
     Active Substance: TEDUGLUTIDE
     Indication: Short-bowel syndrome
     Dosage: 4 MILLIGRAM, QD
     Route: 042
     Dates: start: 20150719, end: 20200909
  3. TEDUGLUTIDE [Suspect]
     Active Substance: TEDUGLUTIDE
     Indication: Short-bowel syndrome
     Dosage: 4 MILLIGRAM, QD
     Route: 042
     Dates: start: 20150719, end: 20200909
  4. TEDUGLUTIDE [Suspect]
     Active Substance: TEDUGLUTIDE
     Indication: Short-bowel syndrome
     Dosage: 4 MILLIGRAM, QD
     Route: 042
     Dates: start: 20150719, end: 20200909
  5. TEDUGLUTIDE [Suspect]
     Active Substance: TEDUGLUTIDE
     Dosage: 3.2 MILLIGRAM
     Route: 042
     Dates: start: 20200909, end: 20221205
  6. TEDUGLUTIDE [Suspect]
     Active Substance: TEDUGLUTIDE
     Dosage: 3.2 MILLIGRAM
     Route: 042
     Dates: start: 20200909, end: 20221205
  7. TEDUGLUTIDE [Suspect]
     Active Substance: TEDUGLUTIDE
     Dosage: 3.2 MILLIGRAM
     Route: 042
     Dates: start: 20200909, end: 20221205
  8. TEDUGLUTIDE [Suspect]
     Active Substance: TEDUGLUTIDE
     Dosage: 3.2 MILLIGRAM
     Route: 042
     Dates: start: 20200909, end: 20221205
  9. MIRTAZAPINE [Concomitant]
     Active Substance: MIRTAZAPINE
     Indication: Mechanical ileus
     Dosage: 15 MILLIGRAM, QD
     Route: 048
     Dates: start: 202206
  10. LOPERAMIDE [Concomitant]
     Active Substance: LOPERAMIDE
     Indication: Diarrhoea
     Dosage: UNK UNK, TID
     Route: 048
     Dates: start: 202206
  11. GASTROGRAFIN [Concomitant]
     Active Substance: DIATRIZOATE MEGLUMINE\DIATRIZOATE SODIUM
     Indication: Prophylaxis
     Dosage: 20 MILLILITER, QID
     Route: 048
     Dates: start: 202206
  12. ENOXAPARIN SODIUM [Concomitant]
     Active Substance: ENOXAPARIN SODIUM
     Indication: Prophylaxis
     Dosage: 20 MILLIGRAM, QD
     Route: 065
     Dates: start: 202206
  13. CASPOFUNGIN [Concomitant]
     Active Substance: CASPOFUNGIN
     Indication: Device related infection
     Dosage: UNK
     Route: 065
     Dates: start: 202207, end: 202208
  14. PIPERACILLIN SODIUM\TAZOBACTAM SODIUM [Concomitant]
     Active Substance: PIPERACILLIN SODIUM\TAZOBACTAM SODIUM
     Indication: Device related infection
     Dosage: UNK
     Route: 065
     Dates: start: 202207, end: 202208
  15. PROKINETIC [Concomitant]
     Indication: Gastrointestinal motility disorder
     Dosage: UNK
     Route: 065
     Dates: start: 202207, end: 202208

REACTIONS (2)
  - Device related infection [Recovered/Resolved]
  - Pneumonia fungal [Recovered/Resolved]

NARRATIVE: CASE EVENT DATE: 20220701
